FAERS Safety Report 15370126 (Version 1)
Quarter: 2018Q3

REPORT INFORMATION
  Report Type: Spontaneous
  Country: US (occurrence: US)
  Receive Date: 20180904
  Receipt Date: 20180904
  Transmission Date: 20181010
  Serious: Yes (Other)
  Sender: FDA-Public Use
  Company Number: None

PATIENT
  Age: 66 Year
  Sex: Male
  Weight: 86.67 kg

DRUGS (15)
  1. DOCUSATE [Concomitant]
     Active Substance: DOCUSATE
  2. TARCEVA [Suspect]
     Active Substance: ERLOTINIB HYDROCHLORIDE
     Indication: LUNG NEOPLASM MALIGNANT
     Route: 048
     Dates: start: 20171023
  3. SODIUM CHLORIDE. [Concomitant]
     Active Substance: SODIUM CHLORIDE
  4. ONDANSETRON [Concomitant]
     Active Substance: ONDANSETRON
  5. ENOXAPARIN [Concomitant]
     Active Substance: ENOXAPARIN
  6. FOLIC ACID. [Concomitant]
     Active Substance: FOLIC ACID
  7. NORCO [Concomitant]
     Active Substance: ACETAMINOPHEN\HYDROCODONE BITARTRATE
  8. METOPROLOL. [Concomitant]
     Active Substance: METOPROLOL
  9. AMIODARONE [Concomitant]
     Active Substance: AMIODARONE
  10. FUROSEMIDE. [Concomitant]
     Active Substance: FUROSEMIDE
  11. SENNA LAXATIVE [Concomitant]
     Active Substance: SENNOSIDES
  12. POTASSIUM SODIUM TARTRATE [Concomitant]
     Active Substance: POTASSIUM SODIUM TARTRATE
  13. SENEXON [Concomitant]
     Active Substance: SENNOSIDES A AND B
  14. PROCHLORPERAZINE. [Concomitant]
     Active Substance: PROCHLORPERAZINE
  15. MIRALAX [Concomitant]
     Active Substance: POLYETHYLENE GLYCOL 3350

REACTIONS (8)
  - Metastases to adrenals [None]
  - Metastases to liver [None]
  - Anaemia [None]
  - Metastases to pleura [None]
  - Fatigue [None]
  - Lung adenocarcinoma [None]
  - Spinal cord compression [None]
  - Metastases to bone [None]

NARRATIVE: CASE EVENT DATE: 20180904
